FAERS Safety Report 7234206-3 (Version None)
Quarter: 2011Q1

REPORT INFORMATION
  Report Type: 
  Country: None (occurrence: None)
  Receive Date: 20110119
  Receipt Date: 20110117
  Transmission Date: 20110831
  Serious: Yes (Other)
  Sender: FDA-Public Use
  Company Number: US-PFIZER INC-2011011131

PATIENT
  Sex: Female
  Weight: 68 kg

DRUGS (10)
  1. CALCIUM [Concomitant]
     Dosage: 600 MG, 2X/DAY
  2. FAMOTIDINE [Concomitant]
     Dosage: 40 MG, UNK
  3. ISOSORBIDE [Concomitant]
     Dosage: 60 MG, UNK
  4. PLAVIX [Concomitant]
     Dosage: UNK
  5. ATENOLOL [Concomitant]
     Dosage: 25MG MORNING, 50 MG EVENING,  2X/DAY
  6. SYNTHROID [Concomitant]
     Dosage: 125 MG, UNK
  7. NORVASC [Concomitant]
     Indication: BLOOD PRESSURE
     Dosage: 5 MG, 2X/DAY
     Route: 048
  8. MAGNESIUM OXIDE [Concomitant]
     Dosage: 400 MG, UNK
  9. LIPITOR [Suspect]
     Indication: BLOOD CHOLESTEROL ABNORMAL
     Dosage: 20 MG, DAILY
     Route: 048
  10. MAXIVISION [Concomitant]
     Dosage: TWO TABLETS TWO TIMES A DAY

REACTIONS (1)
  - DEAFNESS [None]
